FAERS Safety Report 7124219-4 (Version None)
Quarter: 2010Q4

REPORT INFORMATION
  Report Type: 
  Country: None (occurrence: None)
  Receive Date: 20101126
  Receipt Date: 20101124
  Transmission Date: 20110411
  Serious: Yes (Death)
  Sender: FDA-Public Use
  Company Number: CA-PFIZER INC-2010102049

PATIENT
  Age: 73 Year
  Sex: Male
  Weight: 122.5 kg

DRUGS (5)
  1. SUTENT [Suspect]
     Indication: COLORECTAL CANCER METASTATIC
     Dosage: 2800 MG, 2X/DAY
     Route: 048
     Dates: start: 20100716
  2. XELODA [Suspect]
     Indication: COLORECTAL CANCER METASTATIC
     Dosage: 50 MG, 1X/DAY
     Route: 048
     Dates: start: 20100716
  3. AVODART [Concomitant]
     Indication: BENIGN PROSTATIC HYPERPLASIA
     Dosage: 0.5 MG, 1X/DAY
     Route: 048
     Dates: start: 20000101
  4. FLOMAX [Concomitant]
     Indication: BENIGN PROSTATIC HYPERPLASIA
     Dosage: 0.4 MG, 1X/DAY
     Route: 048
     Dates: start: 20000101
  5. IMODIUM [Concomitant]
     Indication: DIARRHOEA
     Dosage: 8 MG, AS NEEDED
     Route: 048
     Dates: start: 20100210

REACTIONS (2)
  - COLORECTAL CANCER METASTATIC [None]
  - DISEASE PROGRESSION [None]
